FAERS Safety Report 14543410 (Version 4)
Quarter: 2018Q2

REPORT INFORMATION
  Report Type: Spontaneous
  Country: JP (occurrence: JP)
  Receive Date: 20180216
  Receipt Date: 20180628
  Transmission Date: 20180711
  Serious: Yes (Other)
  Sender: FDA-Public Use
  Company Number: JP-BRISTOL-MYERS SQUIBB COMPANY-BMS-2018-012548

PATIENT
  Sex: Male

DRUGS (1)
  1. KENACORT-A [Suspect]
     Active Substance: TRIAMCINOLONE
     Indication: SEASONAL ALLERGY
     Dosage: 40 MG, Q12MO
     Route: 030
     Dates: start: 200102

REACTIONS (9)
  - Oesophageal carcinoma [Unknown]
  - Oesophageal ulcer [Unknown]
  - Injection site atrophy [Unknown]
  - Depression [Unknown]
  - Agitation [Unknown]
  - Peptic ulcer [Unknown]
  - Aggression [Unknown]
  - Autonomic nervous system imbalance [Unknown]
  - Mania [Unknown]

NARRATIVE: CASE EVENT DATE: 201801
